FAERS Safety Report 10881011 (Version 1)
Quarter: 2015Q1

REPORT INFORMATION
  Report Type: Spontaneous
  Country: US (occurrence: US)
  Receive Date: 20150303
  Receipt Date: 20150303
  Transmission Date: 20150721
  Serious: No
  Sender: FDA-Public Use
  Company Number: US-PFIZER INC-2015073651

PATIENT
  Age: 48 Year
  Sex: Female
  Weight: 61 kg

DRUGS (1)
  1. CHANTIX [Suspect]
     Active Substance: VARENICLINE TARTRATE
     Indication: SMOKING CESSATION THERAPY
     Dosage: 2 DF, DAILY

REACTIONS (6)
  - Abnormal dreams [Unknown]
  - Dizziness [Unknown]
  - Hostility [Unknown]
  - Fatigue [Unknown]
  - Feeling abnormal [Unknown]
  - Anger [Unknown]
